FAERS Safety Report 25007968 (Version 1)
Quarter: 2025Q1

REPORT INFORMATION
  Report Type: Spontaneous
  Country: US (occurrence: US)
  Receive Date: 20250225
  Receipt Date: 20250225
  Transmission Date: 20250409
  Serious: Yes (Death, Other)
  Sender: DR REDDYS
  Company Number: US-DRL-USA-USA/2025/02/002908

PATIENT
  Age: 37 Year
  Sex: Male

DRUGS (4)
  1. DOXORUBICIN [Suspect]
     Active Substance: DOXORUBICIN
     Indication: Testis cancer
     Dates: start: 2011
  2. DOCETAXEL [Suspect]
     Active Substance: DOCETAXEL
     Indication: Testis cancer
     Dates: start: 2011
  3. CISPLATIN [Suspect]
     Active Substance: CISPLATIN
     Indication: Testis cancer
     Dates: start: 2011
  4. PACLITAXEL [Suspect]
     Active Substance: PACLITAXEL
     Indication: Testis cancer
     Dates: start: 2011

REACTIONS (1)
  - Drug ineffective for unapproved indication [Fatal]
